FAERS Safety Report 21059739 (Version 3)
Quarter: 2022Q4

REPORT INFORMATION
  Report Type: Report from Study
  Country: US (occurrence: US)
  Receive Date: 20220708
  Receipt Date: 20221129
  Transmission Date: 20230112
  Serious: No
  Sender: FDA-Public Use
  Company Number: US-NOVARTISTESTPH-NVSC2022US155724

PATIENT
  Age: 42 Year
  Sex: Male

DRUGS (1)
  1. COSENTYX [Suspect]
     Active Substance: SECUKINUMAB
     Indication: Ankylosing spondylitis
     Dosage: UNK
     Route: 065

REACTIONS (9)
  - Pain [Unknown]
  - Musculoskeletal stiffness [Unknown]
  - Neck pain [Unknown]
  - Swelling [Unknown]
  - Pain in extremity [Unknown]
  - Peripheral swelling [Unknown]
  - Arthralgia [Unknown]
  - Joint swelling [Unknown]
  - Drug ineffective [Unknown]
